FAERS Safety Report 4760063-0 (Version None)
Quarter: 2005Q3

REPORT INFORMATION
  Report Type: 
  Country: None (occurrence: None)
  Receive Date: 20050902
  Receipt Date: 20050809
  Transmission Date: 20060218
  Serious: Yes (Hospitalization)
  Sender: FDA-Public Use
  Company Number: PHBS2005CO11601

PATIENT
  Age: 27 Year
  Sex: Female

DRUGS (5)
  1. CLONAZEPAM [Concomitant]
     Indication: EPILEPSY
     Dosage: 2 MG, UNK
  2. LEXAPRO [Concomitant]
     Indication: DEPRESSION
  3. TOPAMAX [Concomitant]
     Indication: EPILEPSY
     Dosage: 2.5 MG, UNK
  4. PRIMIDONE [Concomitant]
     Indication: EPILEPSY
     Dosage: 1500 MG, UNK
  5. CLOZAPINE [Suspect]
     Indication: DEPRESSION
     Dosage: 100 MG/D
     Route: 048
     Dates: start: 20050729, end: 20050808

REACTIONS (7)
  - AGRANULOCYTOSIS [None]
  - HYPOTENSION [None]
  - LEUKOPENIA [None]
  - NEUTROPENIA [None]
  - PAIN IN EXTREMITY [None]
  - PYREXIA [None]
  - TACHYCARDIA [None]
